FAERS Safety Report 4605612-8 (Version None)
Quarter: 2005Q1

REPORT INFORMATION
  Report Type: 
  Country: None (occurrence: None)
  Receive Date: 20050310
  Receipt Date: 20041118
  Transmission Date: 20050727
  Serious: No
  Sender: FDA-Public Use
  Company Number: US-BRISTOL-MYERS SQUIBB COMPANY-12771549

PATIENT
  Age: 27 Year
  Sex: Female
  Weight: 105 kg

DRUGS (6)
  1. VAGISTAT-1 [Suspect]
     Indication: VAGINAL MYCOSIS
     Route: 067
     Dates: start: 20041117, end: 20041117
  2. AVELOX [Concomitant]
  3. SINGULAIR [Concomitant]
  4. PSEUDOVENT [Concomitant]
  5. NASACORT [Concomitant]
  6. LEXAPRO [Concomitant]

REACTIONS (3)
  - DYSURIA [None]
  - VAGINAL BURNING SENSATION [None]
  - VAGINAL PAIN [None]
